FAERS Safety Report 6762061-4 (Version None)
Quarter: 2010Q2

REPORT INFORMATION
  Report Type: 
  Country: None (occurrence: None)
  Receive Date: 20100609
  Receipt Date: 20100601
  Transmission Date: 20101027
  Serious: Yes (Hospitalization)
  Sender: FDA-Public Use
  Company Number: JP-BRISTOL-MYERS SQUIBB COMPANY-15137193

PATIENT
  Sex: Male

DRUGS (3)
  1. ABILIFY [Suspect]
     Route: 048
  2. LEVOTOMIN [Concomitant]
  3. TEGRETOL [Concomitant]

REACTIONS (1)
  - MYASTHENIC SYNDROME [None]
